FAERS Safety Report 5018187-9 (Version None)
Quarter: 2006Q2

REPORT INFORMATION
  Report Type: 
  Country: None (occurrence: None)
  Receive Date: 20060530
  Receipt Date: 20050301
  Transmission Date: 20061013
  Serious: Yes (Other)
  Sender: FDA-Public Use
  Company Number: 2004119355

PATIENT
  Age: 39 Year
  Sex: Male

DRUGS (9)
  1. LYRICA [Suspect]
     Indication: EPILEPSY
     Dosage: 300 MG (150 MG, 2 IN 1 D), ORAL
     Route: 048
     Dates: start: 20041208, end: 20041224
  2. LEVETIRACETAM [Concomitant]
  3. VIGABATRIN (VIGABATRIN) [Concomitant]
  4. TOPIRAMATE [Concomitant]
  5. PIPERACILLIN AND TAZOBACTAM [Concomitant]
  6. OMEPRAZOLE [Concomitant]
  7. FOLIC ACID [Concomitant]
  8. ENOXAPARIN SODIUM [Concomitant]
  9. DUOVENT (FENOTEROL HYDROBROMIDE, IPRATROPIUM BROMIDE) [Concomitant]

REACTIONS (4)
  - C-REACTIVE PROTEIN INCREASED [None]
  - PANCYTOPENIA [None]
  - PNEUMONIA ASPIRATION [None]
  - TRANSAMINASES INCREASED [None]
